FAERS Safety Report 6048494-2 (Version None)
Quarter: 2009Q1

REPORT INFORMATION
  Report Type: 
  Country: None (occurrence: None)
  Receive Date: 20090123
  Receipt Date: 20090119
  Transmission Date: 20090719
  Serious: Yes (Life-Threatening, Hospitalization)
  Sender: FDA-Public Use
  Company Number: B0550330A

PATIENT
  Age: 79 Year
  Sex: Female

DRUGS (13)
  1. PAXIL [Suspect]
     Indication: DEPRESSION
     Dosage: 20MG PER DAY
     Route: 048
     Dates: start: 20040114, end: 20081127
  2. LIPIDIL [Concomitant]
     Dosage: 100MG PER DAY
     Route: 048
     Dates: start: 20050901, end: 20081101
  3. PANTOSIN [Concomitant]
     Indication: CONSTIPATION
     Dosage: 600MG PER DAY
     Route: 048
     Dates: start: 20030201, end: 20081101
  4. MAGNESIUM OXIDE [Concomitant]
     Dosage: 1G PER DAY
     Route: 048
     Dates: start: 20061004
  5. LENDORMIN [Concomitant]
     Indication: INSOMNIA
     Dosage: .25MG PER DAY
     Route: 048
     Dates: start: 20071201
  6. TETRAMIDE [Concomitant]
     Indication: CONSTIPATION
     Dosage: 10MG PER DAY
     Route: 048
     Dates: start: 20011101
  7. TETRAMIDE [Concomitant]
     Dosage: 10MG PER DAY
     Route: 048
     Dates: start: 20081210
  8. EURODIN [Concomitant]
     Indication: INSOMNIA
     Dosage: 2MG PER DAY
     Route: 048
     Dates: start: 20071201
  9. PURSENNID [Concomitant]
     Indication: CONSTIPATION
     Route: 048
     Dates: start: 20010401
  10. LAXOBERON [Concomitant]
     Indication: CONSTIPATION
     Route: 048
     Dates: start: 20070725
  11. ROHYPNOL [Concomitant]
     Dosage: 2MG PER DAY
     Route: 048
     Dates: start: 20061004, end: 20070724
  12. RHYTHMY [Concomitant]
     Dosage: 2MG PER DAY
     Route: 048
     Dates: start: 20061004, end: 20070724
  13. TETRAMIDE [Concomitant]
     Indication: DEPRESSION
     Dosage: 10MG PER DAY
     Route: 048
     Dates: start: 20011101

REACTIONS (22)
  - ALTERED STATE OF CONSCIOUSNESS [None]
  - BLOOD ALBUMIN DECREASED [None]
  - BLOOD BILIRUBIN DECREASED [None]
  - BLOOD CHLORIDE DECREASED [None]
  - BLOOD CREATINE PHOSPHOKINASE INCREASED [None]
  - BLOOD CREATININE DECREASED [None]
  - BLOOD ELECTROLYTES ABNORMAL [None]
  - BLOOD GLUCOSE ABNORMAL [None]
  - BLOOD LACTATE DEHYDROGENASE INCREASED [None]
  - BLOOD PHOSPHORUS DECREASED [None]
  - BLOOD SODIUM DECREASED [None]
  - BLOOD UREA DECREASED [None]
  - BLOOD URIC ACID DECREASED [None]
  - C-REACTIVE PROTEIN INCREASED [None]
  - GASTROENTERITIS [None]
  - HAEMATOCRIT DECREASED [None]
  - HAEMOGLOBIN DECREASED [None]
  - HYPONATRAEMIA [None]
  - INAPPROPRIATE ANTIDIURETIC HORMONE SECRETION [None]
  - PROTEIN TOTAL INCREASED [None]
  - RED BLOOD CELL COUNT DECREASED [None]
  - VOMITING [None]
